FAERS Safety Report 9473570 (Version 1)
Quarter: 2013Q3

REPORT INFORMATION
  Report Type: Spontaneous
  Country: US (occurrence: US)
  Receive Date: 20130823
  Receipt Date: 20130823
  Transmission Date: 20140515
  Serious: Yes (Hospitalization)
  Sender: FDA-Public Use
  Company Number: US-BAYER-2013-101707

PATIENT
  Age: 25 Year
  Sex: Female
  Weight: 86.18 kg

DRUGS (8)
  1. GIANVI [Suspect]
  2. YAZ [Suspect]
  3. VYVANSE [Concomitant]
     Dosage: 30 MG, UNK
     Route: 048
  4. TOPAMAX [Concomitant]
     Dosage: 200 MG, UNK
     Route: 048
  5. VIIBRYD [Concomitant]
     Dosage: 20 MG, DAILY
     Route: 048
  6. ABILIFY [Concomitant]
     Dosage: 5 MG, DAILY
     Route: 048
  7. KLONOPIN [Concomitant]
     Dosage: 0.75 MG, DAILY
     Route: 048
  8. DILAUDID [Concomitant]

REACTIONS (1)
  - Pulmonary embolism [None]
